FAERS Safety Report 4929306-4 (Version None)
Quarter: 2006Q1

REPORT INFORMATION
  Report Type: 
  Country: None (occurrence: None)
  Receive Date: 20060131
  Receipt Date: 20051213
  Transmission Date: 20060701
  Serious: Yes (Hospitalization)
  Sender: FDA-Public Use
  Company Number: MK200512-0329-1

PATIENT
  Age: 65 Year
  Sex: Male

DRUGS (2)
  1. OXYCODONE HCL [Suspect]
     Indication: BREAKTHROUGH PAIN
     Dosage: 30 MG, BID, PO
     Route: 048
     Dates: end: 20051215
  2. FENTANYL [Suspect]
     Indication: PAIN

REACTIONS (2)
  - DYSPNOEA [None]
  - RESPIRATORY DEPRESSION [None]
